FAERS Safety Report 8960047 (Version 1)
Quarter: 2012Q4

REPORT INFORMATION
  Report Type: Report from Study
  Country: US (occurrence: US)
  Receive Date: 20121212
  Receipt Date: 20121212
  Transmission Date: 20130627
  Serious: Yes (Hospitalization)
  Sender: FDA-Public Use
  Company Number: US-JNJFOC-20101004482

PATIENT
  Age: 65 Year
  Sex: Female
  Weight: 65.2 kg

DRUGS (6)
  1. DOXIL [Suspect]
     Indication: MULTIPLE MYELOMA
     Dosage: patient received 5 cycles
     Route: 042
     Dates: start: 20100920, end: 20100920
  2. DOXIL [Suspect]
     Indication: MULTIPLE MYELOMA
     Route: 042
     Dates: start: 20100601, end: 20110106
  3. REVLIMID [Suspect]
     Indication: MULTIPLE MYELOMA
     Route: 048
     Dates: start: 20100920, end: 20101010
  4. REVLIMID [Suspect]
     Indication: MULTIPLE MYELOMA
     Route: 048
     Dates: start: 20100601
  5. DEXAMETHASONE [Suspect]
     Indication: MULTIPLE MYELOMA
     Route: 048
     Dates: start: 20100920, end: 20100923
  6. DEXAMETHASONE [Suspect]
     Indication: MULTIPLE MYELOMA
     Route: 048
     Dates: start: 20100601

REACTIONS (5)
  - Pneumonia [Recovered/Resolved]
  - Cerebral haemorrhage [Not Recovered/Not Resolved]
  - Deep vein thrombosis [Recovered/Resolved]
  - Atelectasis [Recovered/Resolved]
  - Pyrexia [Recovered/Resolved]
